FAERS Safety Report 23757994 (Version 4)
Quarter: 2024Q3

REPORT INFORMATION
  Report Type: Spontaneous
  Country: US (occurrence: US)
  Receive Date: 20240418
  Receipt Date: 20240809
  Transmission Date: 20241016
  Serious: No
  Sender: ABBVIE
  Company Number: US-ABBVIE-5720557

PATIENT
  Sex: Male

DRUGS (2)
  1. LUPRON DEPOT [Suspect]
     Active Substance: LEUPROLIDE ACETATE
     Indication: Product used for unknown indication
     Route: 065
  2. XTANDI [Suspect]
     Active Substance: ENZALUTAMIDE
     Indication: Prostate cancer
     Dosage: FORM STRENGTH: 40 MG
     Route: 048
     Dates: start: 20230228

REACTIONS (5)
  - Dizziness postural [Recovered/Resolved]
  - Underdose [Unknown]
  - Red blood cell count decreased [Unknown]
  - Fatigue [Unknown]
  - Vertigo [Unknown]
